APPROVED DRUG PRODUCT: SERTRALINE HYDROCHLORIDE
Active Ingredient: SERTRALINE HYDROCHLORIDE
Strength: EQ 100MG BASE
Dosage Form/Route: TABLET;ORAL
Application: A076881 | Product #003 | TE Code: AB
Applicant: STRIDES PHARMA GLOBAL PTE LTD
Approved: Feb 6, 2007 | RLD: No | RS: No | Type: RX